FAERS Safety Report 8377906-4 (Version None)
Quarter: 2012Q2

REPORT INFORMATION
  Report Type: 
  Country: None (occurrence: None)
  Receive Date: 20120521
  Receipt Date: 20120511
  Transmission Date: 20120825
  Serious: Yes (Hospitalization, Other)
  Sender: FDA-Public Use
  Company Number: CIP11000516

PATIENT
  Age: 57 Year
  Sex: Female
  Weight: 68 kg

DRUGS (16)
  1. FERROUS SULFATE TAB [Concomitant]
  2. VALTREX [Concomitant]
  3. HUMRA (ADALIMUMAB) [Concomitant]
  4. LEVOTHYROXINE SODIUM [Concomitant]
  5. METHOTREXATE [Concomitant]
  6. LISINOPRIL [Concomitant]
  7. PANTOPRAZOLE SODIUM (PANTOPRAZOLE SODIUM SESQUIHYDRATE) [Concomitant]
  8. CLARINEX /01202601/ (LORATADINE, PSEUDOEPHEDRINE SULFATE) [Concomitant]
  9. ACTONEL [Suspect]
     Indication: OSTEOPENIA
     Dosage: 150 MG ONCE MONTHLY, ORAL
     Route: 048
     Dates: start: 20090501, end: 20100122
  10. PREDNISONE TAB [Concomitant]
  11. DYAZIDE [Concomitant]
  12. NABUMETONE [Concomitant]
  13. FOLIC ACID [Concomitant]
  14. NASONEX [Concomitant]
  15. ASPIRIN [Concomitant]
  16. VITAMIN D /00318501/ (COLCALCIFEROL) [Concomitant]

REACTIONS (9)
  - FALL [None]
  - STRESS FRACTURE [None]
  - ANAEMIA POSTOPERATIVE [None]
  - PAIN IN EXTREMITY [None]
  - HYPERCALCAEMIA [None]
  - FRACTURE DISPLACEMENT [None]
  - FRACTURE DELAYED UNION [None]
  - FEMUR FRACTURE [None]
  - URINARY TRACT INFECTION [None]
